FAERS Safety Report 10529644 (Version 1)
Quarter: 2014Q4

REPORT INFORMATION
  Report Type: Spontaneous
  Country: US (occurrence: US)
  Receive Date: 20141021
  Receipt Date: 20141021
  Transmission Date: 20150528
  Serious: No
  Sender: FDA-Public Use
  Company Number: US-BIOGENIDEC-2014BI107889

PATIENT
  Age: 55 Year
  Sex: Female

DRUGS (11)
  1. SEROQUEL [Concomitant]
     Active Substance: QUETIAPINE FUMARATE
  2. TRICOR [Concomitant]
     Active Substance: FENOFIBRATE
  3. VITAMIN D3 [Concomitant]
     Active Substance: CHOLECALCIFEROL
  4. TOPROL XL [Concomitant]
     Active Substance: METOPROLOL SUCCINATE
  5. TECFIDERA [Suspect]
     Active Substance: DIMETHYL FUMARATE
     Indication: PRODUCT USED FOR UNKNOWN INDICATION
     Route: 048
     Dates: start: 20130913, end: 20130920
  6. GABAPENTIN. [Concomitant]
     Active Substance: GABAPENTIN
  7. TRAMADOL [Concomitant]
     Active Substance: TRAMADOL
  8. NORCO [Concomitant]
     Active Substance: ACETAMINOPHEN\HYDROCODONE BITARTRATE
  9. ZOCOR [Concomitant]
     Active Substance: SIMVASTATIN
  10. EFFEXOR [Concomitant]
     Active Substance: VENLAFAXINE HYDROCHLORIDE
  11. TECFIDERA [Suspect]
     Active Substance: DIMETHYL FUMARATE
     Indication: PRODUCT USED FOR UNKNOWN INDICATION
     Route: 048
     Dates: start: 20130921

REACTIONS (1)
  - Gastric disorder [Unknown]
